FAERS Safety Report 18734855 (Version 1)
Quarter: 2021Q1

REPORT INFORMATION
  Report Type: Spontaneous
  Country: US (occurrence: US)
  Receive Date: 20210112
  Receipt Date: 20210112
  Transmission Date: 20210419
  Serious: Yes (Hospitalization, Other)
  Sender: FDA-Public Use
  Company Number: None

PATIENT
  Age: 51 Year
  Sex: Female

DRUGS (17)
  1. LEVOTHYROXINE. [Concomitant]
     Active Substance: LEVOTHYROXINE
  2. ALPRAZOLAM TAB [Concomitant]
  3. METFORMIN [Concomitant]
     Active Substance: METFORMIN HYDROCHLORIDE
  4. ONETOUCH TEST STRIPS VERIO [Concomitant]
  5. GLIPIZIDE ER TAB [Concomitant]
  6. TRAMADOL HCL [Concomitant]
     Active Substance: TRAMADOL HYDROCHLORIDE
  7. AMLODIPINE TAB [Concomitant]
  8. ONETOUCH DEL MIS PLUS [Concomitant]
  9. HUMIRA [Suspect]
     Active Substance: ADALIMUMAB
     Indication: CROHN^S DISEASE
     Route: 058
     Dates: start: 20150721
  10. ESZOPICLONE. [Concomitant]
     Active Substance: ESZOPICLONE
  11. FLUTICASONE SPR [Concomitant]
  12. BACLOFEN TAB [Concomitant]
  13. DULOXETINE CAP [Concomitant]
     Active Substance: DULOXETINE HYDROCHLORIDE
  14. PANTOPRAZOLE TAB [Concomitant]
  15. DEXILANT CAP [Concomitant]
  16. CYCLOBENZABRINE [Concomitant]
  17. NORTREL TAB [Concomitant]

REACTIONS (2)
  - Intestinal obstruction [None]
  - Bowel movement irregularity [None]

NARRATIVE: CASE EVENT DATE: 20201227
